FAERS Safety Report 18954805 (Version 1)
Quarter: 2021Q1

REPORT INFORMATION
  Report Type: Spontaneous
  Country: AT (occurrence: AT)
  Receive Date: 20210301
  Receipt Date: 20210301
  Transmission Date: 20210420
  Serious: Yes (Other)
  Sender: FDA-Public Use
  Company Number: AT-ORGANON-1805AUT007142

PATIENT
  Sex: Female

DRUGS (1)
  1. MERCILON [Suspect]
     Active Substance: DESOGESTREL\ETHINYL ESTRADIOL
     Indication: PRODUCT USED FOR UNKNOWN INDICATION
     Dosage: UNK
     Route: 048
     Dates: start: 1990, end: 2000

REACTIONS (15)
  - Autoimmune thyroiditis [Unknown]
  - Cranial nerve disorder [Unknown]
  - Abdominal pain [Unknown]
  - Feeling cold [Unknown]
  - Limb discomfort [Unknown]
  - Folate deficiency [Unknown]
  - Spinal disorder [Unknown]
  - Lactose intolerance [Unknown]
  - Fructose intolerance [Unknown]
  - Menstrual disorder [Unknown]
  - Coeliac disease [Unknown]
  - Separation anxiety disorder [Unknown]
  - Flatulence [Unknown]
  - Breast atrophy [Unknown]
  - Polyneuropathy [Unknown]

NARRATIVE: CASE EVENT DATE: 1991
